FAERS Safety Report 6998588-X (Version None)
Quarter: 2010Q3

REPORT INFORMATION
  Report Type: 
  Country: None (occurrence: None)
  Receive Date: 20100920
  Receipt Date: 20100311
  Transmission Date: 20110219
  Serious: Yes (Other)
  Sender: FDA-Public Use
  Company Number: US-ASTRAZENECA-2008UW13533

PATIENT
  Age: 34 Year
  Sex: Male
  Weight: 63.5 kg

DRUGS (15)
  1. SEROQUEL [Suspect]
     Indication: THINKING ABNORMAL
     Route: 048
     Dates: start: 19860101, end: 20060101
  2. SEROQUEL [Suspect]
     Indication: BIPOLAR DISORDER
     Route: 048
     Dates: start: 19860101, end: 20060101
  3. SEROQUEL [Suspect]
     Indication: DEPRESSION
     Route: 048
     Dates: start: 19860101, end: 20060101
  4. SEROQUEL [Suspect]
     Dosage: 200 TO 800 MG
     Route: 048
     Dates: start: 20051027
  5. SEROQUEL [Suspect]
     Dosage: 200 TO 800 MG
     Route: 048
     Dates: start: 20051027
  6. SEROQUEL [Suspect]
     Dosage: 200 TO 800 MG
     Route: 048
     Dates: start: 20051027
  7. ABILIFY [Concomitant]
     Dates: start: 20090701
  8. HALDOL [Concomitant]
  9. RISPERDAL [Concomitant]
     Dates: start: 20010101
  10. ZYPREXA [Concomitant]
     Dates: start: 20040101
  11. SYMBYAX [Concomitant]
     Dates: start: 20040101
  12. CITALOPRAM HYDROBROMIDE [Concomitant]
     Indication: AFFECTIVE DISORDER
     Dosage: 40 MG 1/2 TABLET DAILY
     Route: 048
     Dates: start: 20051027
  13. CLONIDINE [Concomitant]
     Indication: BLOOD PRESSURE
     Dates: start: 20051027
  14. TOPIRAMATE [Concomitant]
     Dates: start: 20051027
  15. TRAZODONE HCL [Concomitant]
     Dates: start: 20051027

REACTIONS (5)
  - DIABETIC COMA [None]
  - MIGRAINE [None]
  - PANCREATITIS [None]
  - PANCREATITIS CHRONIC [None]
  - TYPE 2 DIABETES MELLITUS [None]
